FAERS Safety Report 20298985 (Version 1)
Quarter: 2022Q1

REPORT INFORMATION
  Report Type: Other
  Country: IN (occurrence: None)
  Receive Date: 20220105
  Receipt Date: 20220105
  Transmission Date: 20220423
  Serious: Yes (Other)
  Sender: FDA-Public Use
  Company Number: IN-ROCHE-2992899

PATIENT
  Age: 44 Year
  Sex: Male

DRUGS (1)
  1. BEVACIZUMAB [Suspect]
     Active Substance: BEVACIZUMAB
     Indication: Polypoidal choroidal vasculopathy
     Dosage: 1.25 MG/0.05 ML
     Route: 050

REACTIONS (3)
  - Macular hole [Unknown]
  - Off label use [Unknown]
  - Off label use [Unknown]
